FAERS Safety Report 25790258 (Version 1)
Quarter: 2025Q3

REPORT INFORMATION
  Report Type: Spontaneous
  Country: CN (occurrence: CN)
  Receive Date: 20250911
  Receipt Date: 20250911
  Transmission Date: 20251020
  Serious: Yes (Hospitalization, Other)
  Sender: COSETTE PHARMACEUTICALS INC
  Company Number: CN-SA-2025SA259261

PATIENT
  Age: 42 Year
  Sex: Male

DRUGS (4)
  1. AMBIEN [Suspect]
     Active Substance: ZOLPIDEM TARTRATE
     Indication: Nervous system disorder
     Dosage: AT BEDTIME
     Route: 048
     Dates: start: 20250801, end: 20250803
  2. AMBIEN [Suspect]
     Active Substance: ZOLPIDEM TARTRATE
     Indication: Sleep disorder
     Route: 048
  3. MONTMORILLONITE [Concomitant]
     Active Substance: MONTMORILLONITE
     Indication: Asthenia
     Route: 065
     Dates: start: 20250726
  4. AMLODIPINE BESYLATE [Concomitant]
     Active Substance: AMLODIPINE BESYLATE
     Indication: Asthenia
     Route: 065
     Dates: start: 20250726

REACTIONS (6)
  - Alcoholic psychosis [Recovering/Resolving]
  - Hallucination [Recovering/Resolving]
  - Hallucination, visual [Recovering/Resolving]
  - Speech disorder [Recovering/Resolving]
  - Familial periodic paralysis [Unknown]
  - Tremor [Unknown]

NARRATIVE: CASE EVENT DATE: 20250803
